FAERS Safety Report 8019582-6 (Version None)
Quarter: 2012Q1

REPORT INFORMATION
  Report Type: 
  Country: None (occurrence: None)
  Receive Date: 20120103
  Receipt Date: 20111220
  Transmission Date: 20120608
  Serious: Yes (Death)
  Sender: FDA-Public Use
  Company Number: FR-MERCK-1112USA03000

PATIENT
  Age: 67 Year
  Sex: Male

DRUGS (6)
  1. ZETIA [Suspect]
     Route: 048
  2. PLAVIX [Suspect]
     Route: 048
     Dates: start: 20080101
  3. NEBIVOLOL HCL [Suspect]
     Route: 048
  4. ASPIRIN [Suspect]
     Route: 048
  5. PERINDOPRIL ERBUMINE [Suspect]
     Route: 048
  6. CRESTOR [Suspect]
     Route: 048

REACTIONS (1)
  - BRAIN STEM HAEMORRHAGE [None]
